FAERS Safety Report 4465856-5 (Version None)
Quarter: 2004Q3

REPORT INFORMATION
  Report Type: 
  Country: None (occurrence: None)
  Receive Date: 20040929
  Receipt Date: 20040929
  Transmission Date: 20050211
  Serious: Yes (Congenital Anomaly)
  Sender: FDA-Public Use
  Company Number: None

PATIENT
  Sex: Female
  Weight: 3.1752 kg

DRUGS (1)
  1. CELEXA [Suspect]
     Indication: DEPRESSION
     Dosage: ONE DAILY ORAL
     Route: 048
     Dates: start: 19990301, end: 20040501

REACTIONS (1)
  - DACRYOSTENOSIS ACQUIRED [None]
